FAERS Safety Report 4817857-2 (Version None)
Quarter: 2005Q3

REPORT INFORMATION
  Report Type: 
  Country: None (occurrence: None)
  Receive Date: 20050929
  Receipt Date: 20050630
  Transmission Date: 20060218
  Serious: No
  Sender: FDA-Public Use
  Company Number: 05P-163-0304672-00

PATIENT
  Age: 55 Year
  Sex: Female
  Weight: 101 kg

DRUGS (10)
  1. HUMIRA [Suspect]
     Indication: RHEUMATOID ARTHRITIS
     Dosage: 40 MG, 1 IN 2 WK, SUBCUTANEOUS
     Route: 058
     Dates: start: 20050510, end: 20050524
  2. ARTHROTEC [Concomitant]
  3. SULFASALAZINE [Concomitant]
  4. ESOMEPRAZOLE [Concomitant]
  5. ESTROGENS CONJUGATED [Concomitant]
  6. AMLODIPINE BESYLATE [Concomitant]
  7. HYDROCHLOROTHIAZIDE [Concomitant]
  8. FOLIC ACID [Concomitant]
  9. ATORVASTATIN CALCIUM [Concomitant]
  10. CENTRUM [Concomitant]

REACTIONS (1)
  - PSORIASIS [None]
